FAERS Safety Report 11259003 (Version 1)
Quarter: 2015Q2

REPORT INFORMATION
  Report Type: Spontaneous
  Country: US (occurrence: None)
  Receive Date: 20150617
  Receipt Date: 20150617
  Transmission Date: 20150821
  Serious: No
  Sender: FDA-Public Use
  Company Number: 2015TASUS000674

PATIENT
  Sex: Male

DRUGS (4)
  1. FENTANYL PCH (FENTANYL) [Concomitant]
  2. AMITRIPTYLINE (AMITRIPTYLINE) [Concomitant]
     Active Substance: AMITRIPTYLINE
  3. TRAZODONE HCL (TRAZODONE HYDROCHLORIDE) [Concomitant]
  4. HETLIOZ [Suspect]
     Active Substance: TASIMELTEON
     Indication: CIRCADIAN RHYTHM SLEEP DISORDER
     Route: 048
     Dates: start: 20140623

REACTIONS (3)
  - Middle insomnia [None]
  - Nausea [None]
  - Balance disorder [None]
